FAERS Safety Report 7260937-5 (Version None)
Quarter: 2011Q1

REPORT INFORMATION
  Report Type: 
  Country: None (occurrence: None)
  Receive Date: 20110130
  Receipt Date: 20101227
  Transmission Date: 20110831
  Serious: No
  Sender: FDA-Public Use
  Company Number: US-ABBOTT-10P-163-0694003-00

PATIENT
  Sex: Female
  Weight: 60.382 kg

DRUGS (1)
  1. HUMIRA [Suspect]
     Indication: RHEUMATOID ARTHRITIS
     Route: 058
     Dates: start: 20080101

REACTIONS (4)
  - MUSCULOSKELETAL STIFFNESS [None]
  - INCORRECT STORAGE OF DRUG [None]
  - ARTHRALGIA [None]
  - JOINT STIFFNESS [None]
